FAERS Safety Report 18948667 (Version 1)
Quarter: 2021Q1

REPORT INFORMATION
  Report Type: Spontaneous
  Country: GB (occurrence: GB)
  Receive Date: 20210227
  Receipt Date: 20210227
  Transmission Date: 20210420
  Serious: Yes (Disabling, Other)
  Sender: FDA-Public Use
  Company Number: GB-ACCORD-218284

PATIENT
  Age: 50 Year
  Sex: Male
  Weight: 63 kg

DRUGS (1)
  1. CISPLATIN. [Suspect]
     Active Substance: CISPLATIN
     Indication: THROAT CANCER
     Route: 051
     Dates: start: 20200707, end: 20200811

REACTIONS (17)
  - Pyrexia [Recovered/Resolved with Sequelae]
  - Decreased appetite [Recovered/Resolved with Sequelae]
  - Nausea [Recovered/Resolved with Sequelae]
  - Hypoacusis [Not Recovered/Not Resolved]
  - Peripheral coldness [Unknown]
  - Fatigue [Not Recovered/Not Resolved]
  - Visual impairment [Recovered/Resolved with Sequelae]
  - Alopecia [Recovered/Resolved with Sequelae]
  - Hyperaesthesia [Not Recovered/Not Resolved]
  - Off label use [Unknown]
  - Constipation [Recovered/Resolved with Sequelae]
  - Arthralgia [Not Recovered/Not Resolved]
  - Pollakiuria [Not Recovered/Not Resolved]
  - Insomnia [Recovered/Resolved with Sequelae]
  - Raynaud^s phenomenon [Unknown]
  - Memory impairment [Not Recovered/Not Resolved]
  - Heart rate increased [Not Recovered/Not Resolved]

NARRATIVE: CASE EVENT DATE: 20200707
